FAERS Safety Report 7768782-9 (Version None)
Quarter: 2011Q3

REPORT INFORMATION
  Report Type: 
  Country: None (occurrence: None)
  Receive Date: 20110922
  Receipt Date: 20100915
  Transmission Date: 20111222
  Serious: No
  Sender: FDA-Public Use
  Company Number: US-ASTRAZENECA-2010SE43738

PATIENT
  Age: 715 Month
  Sex: Female

DRUGS (9)
  1. PROPRANOLOL [Concomitant]
  2. SEROQUEL XR [Suspect]
     Route: 048
     Dates: start: 20100601
  3. FENOFIBRATE [Concomitant]
  4. SEROQUEL XR [Suspect]
     Indication: SCHIZOPHRENIA
     Route: 048
     Dates: start: 20080101, end: 20100601
  5. PEROXITINE [Concomitant]
  6. LISINOPRIL [Concomitant]
  7. TRAZODONE HCL [Concomitant]
  8. ABILIFY [Concomitant]
  9. BENZTROPINE MESYLATE [Concomitant]

REACTIONS (6)
  - NASAL CONGESTION [None]
  - DRY MOUTH [None]
  - SOMNOLENCE [None]
  - FATIGUE [None]
  - ABDOMINAL DISCOMFORT [None]
  - MEMORY IMPAIRMENT [None]
